FAERS Safety Report 6067332-5 (Version None)
Quarter: 2009Q1

REPORT INFORMATION
  Report Type: 
  Country: None (occurrence: None)
  Receive Date: 20090204
  Receipt Date: 20090204
  Transmission Date: 20090719
  Serious: No
  Sender: FDA-Public Use
  Company Number: None

PATIENT
  Age: 58 Year
  Sex: Female
  Weight: 63.5036 kg

DRUGS (1)
  1. EFUDEX [Suspect]
     Indication: SKIN PAPILLOMA
     Dosage: RUB ON DAILY AT BEDTIME TOP
     Route: 061
     Dates: start: 20090111, end: 20090201

REACTIONS (1)
  - DRUG INEFFECTIVE [None]
